FAERS Safety Report 11916035 (Version 1)
Quarter: 2016Q1

REPORT INFORMATION
  Report Type: Spontaneous
  Country: US (occurrence: US)
  Receive Date: 20160114
  Receipt Date: 20160114
  Transmission Date: 20160526
  Serious: No
  Sender: FDA-Public Use
  Company Number: US-TORRENT-00001065

PATIENT
  Sex: Female

DRUGS (1)
  1. PANTOPRAZOLE SODIUM DELAYED RELEASE [Suspect]
     Active Substance: PANTOPRAZOLE SODIUM
     Indication: DYSPEPSIA
     Dosage: 1 BY MOUTH EVERY DAY
     Route: 048
     Dates: start: 20151002, end: 20151004

REACTIONS (1)
  - Dyspepsia [Recovered/Resolved]
